FAERS Safety Report 19157511 (Version 1)
Quarter: 2021Q2

REPORT INFORMATION
  Report Type: Spontaneous
  Country: US (occurrence: US)
  Receive Date: 20210420
  Receipt Date: 20210420
  Transmission Date: 20210717
  Serious: Yes (Hospitalization)
  Sender: FDA-Public Use
  Company Number: US-MYLANLABS-2021M1022608

PATIENT
  Age: 40 Year
  Sex: Male

DRUGS (1)
  1. TESTOSTERONE. [Suspect]
     Active Substance: TESTOSTERONE
     Indication: PRODUCT USED FOR UNKNOWN INDICATION
     Dosage: SELF?ADMINISTRATION
     Route: 065

REACTIONS (10)
  - Alpha haemolytic streptococcal infection [Recovered/Resolved]
  - Endocarditis [Recovered/Resolved]
  - Mitral valve incompetence [Recovered/Resolved]
  - Intentional product misuse [Recovered/Resolved]
  - Product contamination microbial [Recovered/Resolved]
  - Spinal cord compression [Recovered/Resolved]
  - Aortic valve incompetence [Recovered/Resolved]
  - Spinal cord abscess [Recovered/Resolved]
  - Aortic aneurysm [Recovered/Resolved]
  - Streptococcal sepsis [Recovered/Resolved]
